FAERS Safety Report 9399190 (Version 2)
Quarter: 2013Q3

REPORT INFORMATION
  Report Type: Spontaneous
  Country: IT (occurrence: None)
  Receive Date: 20130710
  Receipt Date: 20130910
  Transmission Date: 20140515
  Serious: Yes (Hospitalization)
  Sender: FDA-Public Use
  Company Number: AUR-APL-2013-05684

PATIENT
  Age: 34 Year
  Sex: Female

DRUGS (2)
  1. SERTRALINE [Suspect]
     Indication: PRODUCT USED FOR UNKNOWN INDICATION
     Route: 048
     Dates: start: 20130630, end: 20130630
  2. SEROQUEL [Suspect]
     Indication: PRODUCT USED FOR UNKNOWN INDICATION
     Route: 048
     Dates: start: 20130630, end: 20130630

REACTIONS (5)
  - Intentional overdose [None]
  - Psychomotor skills impaired [None]
  - Depressed mood [None]
  - Drug abuse [None]
  - Alcohol abuse [None]
